FAERS Safety Report 15010668 (Version 7)
Quarter: 2018Q4

REPORT INFORMATION
  Report Type: Spontaneous
  Country: ES (occurrence: ES)
  Receive Date: 20180614
  Receipt Date: 20181220
  Transmission Date: 20190204
  Serious: Yes (Hospitalization, Other)
  Sender: FDA-Public Use
  Company Number: ES-JNJFOC-20180604152

PATIENT
  Age: 5 Year
  Sex: Female

DRUGS (3)
  1. IBUPROFEN. [Suspect]
     Active Substance: IBUPROFEN
     Route: 065
  2. IBUPROFEN. [Suspect]
     Active Substance: IBUPROFEN
     Indication: PYREXIA
     Route: 065
  3. PARACETAMOL [Suspect]
     Active Substance: ACETAMINOPHEN
     Indication: PYREXIA
     Route: 065

REACTIONS (14)
  - Ectropion [Unknown]
  - Keratitis [Unknown]
  - Corneal disorder [Unknown]
  - Dry eye [Unknown]
  - Open globe injury [Unknown]
  - Rash maculo-papular [Unknown]
  - Lip swelling [Unknown]
  - Toxic epidermal necrolysis [Unknown]
  - Ulcerative keratitis [Recovering/Resolving]
  - Swelling of eyelid [Unknown]
  - Pyrexia [Unknown]
  - Stevens-Johnson syndrome [Unknown]
  - Fusarium infection [Unknown]
  - Hypopyon [Recovering/Resolving]
